FAERS Safety Report 20715013 (Version 4)
Quarter: 2022Q2

REPORT INFORMATION
  Report Type: Spontaneous
  Country: FR (occurrence: FR)
  Receive Date: 20220415
  Receipt Date: 20220527
  Transmission Date: 20220721
  Serious: Yes (Hospitalization)
  Sender: FDA-Public Use
  Company Number: FR-PFIZER INC-202200544475

PATIENT
  Age: 53 Year
  Sex: Female
  Weight: 50 kg

DRUGS (1)
  1. PAXLOVID [Suspect]
     Active Substance: NIRMATRELVIR\RITONAVIR
     Indication: COVID-19 treatment
     Dosage: 3 DF, 2X/DAY
     Route: 048
     Dates: start: 20220309, end: 20220313

REACTIONS (2)
  - Drug ineffective [Unknown]
  - Diarrhoea [Unknown]
